FAERS Safety Report 5799245-8 (Version None)
Quarter: 2008Q3

REPORT INFORMATION
  Report Type: 
  Country: None (occurrence: None)
  Receive Date: 20080702
  Receipt Date: 20080624
  Transmission Date: 20090109
  Serious: Yes (Hospitalization)
  Sender: FDA-Public Use
  Company Number: FI-PFIZER INC-2008048274

PATIENT
  Age: 63 Year
  Sex: Male

DRUGS (5)
  1. ZYVOXID TABLET [Suspect]
     Indication: SKIN INFECTION
     Route: 048
  2. ZYVOXID TABLET [Suspect]
     Indication: SOFT TISSUE INFECTION
  3. TAVANIC [Concomitant]
  4. PRIMASPAN [Concomitant]
     Route: 048
  5. SIMVASTATIN [Concomitant]
     Indication: HYPERCHOLESTEROLAEMIA
     Route: 048

REACTIONS (7)
  - ABDOMINAL PAIN [None]
  - ANAEMIA [None]
  - DEHYDRATION [None]
  - HYPOTENSION [None]
  - NAUSEA [None]
  - OEDEMA PERIPHERAL [None]
  - TACHYCARDIA [None]
